FAERS Safety Report 16958522 (Version 1)
Quarter: 2019Q4

REPORT INFORMATION
  Report Type: Spontaneous
  Country: AT (occurrence: AT)
  Receive Date: 20191024
  Receipt Date: 20191024
  Transmission Date: 20200122
  Serious: No
  Sender: FDA-Public Use
  Company Number: AT-BEH-2019108524

PATIENT
  Age: 18 Year
  Sex: Male

DRUGS (1)
  1. PRIVIGEN [Suspect]
     Active Substance: HUMAN IMMUNOGLOBULIN G
     Indication: PRODUCT USED FOR UNKNOWN INDICATION
     Dosage: 1X10 MG, DANN 1X 20 MG I.V.
     Route: 042
     Dates: start: 20190930, end: 20190930

REACTIONS (2)
  - Dermatitis allergic [Unknown]
  - Skin reaction [Unknown]

NARRATIVE: CASE EVENT DATE: 20190930
